FAERS Safety Report 22302850 (Version 2)
Quarter: 2023Q2

REPORT INFORMATION
  Report Type: Spontaneous
  Country: RO (occurrence: RO)
  Receive Date: 20230510
  Receipt Date: 20230614
  Transmission Date: 20230722
  Serious: Yes (Other)
  Sender: FDA-Public Use
  Company Number: RO-EMA-DD-20230421-225467-134408

PATIENT
  Age: 66 Year
  Sex: Male

DRUGS (15)
  1. ERBITUX [Suspect]
     Active Substance: CETUXIMAB
     Indication: Squamous cell carcinoma of head and neck
     Dosage: UNK, CYCLIC (RECHALLENGE OF PLATINUM BASE CHEMOTHERAPY WAS PROPOSED WITH CARBOPLATIN-5 FUREGIMEN)
     Route: 065
  2. ERBITUX [Suspect]
     Active Substance: CETUXIMAB
     Dosage: CYCLIC
     Route: 065
     Dates: start: 201701
  3. ERBITUX [Suspect]
     Active Substance: CETUXIMAB
     Dosage: CYCLIC
     Route: 065
     Dates: start: 201711, end: 201802
  4. GEMCITABINE HYDROCHLORIDE [Suspect]
     Active Substance: GEMCITABINE HYDROCHLORIDE
     Indication: Squamous cell carcinoma of head and neck
     Dosage: 2ND LINE CHEMOTHERAPY IN THE GEMCITABINE-CARBOPLATIN POLYCHEMOTHERAPY, THERAPY START DATE 2018
     Route: 065
     Dates: end: 201811
  5. CAPECITABINE [Suspect]
     Active Substance: CAPECITABINE
     Indication: Squamous cell carcinoma of head and neck
     Dosage: 2 CYCLES, CYCLIC (FIRST SEQUENCE OF POLY-CHEMOTHERAPY)
     Route: 065
     Dates: start: 2016
  6. CAPECITABINE [Suspect]
     Active Substance: CAPECITABINE
     Dosage: CYCLIC (FIRST SEQUENCE OF POLY-CHEMOTHERAPY)
     Route: 065
  7. CARBOPLATIN [Suspect]
     Active Substance: CARBOPLATIN
     Indication: Squamous cell carcinoma of head and neck
     Dosage: 2ND LINE CHEMOTHERAPY IN THE GEMCITABINE-CARBOPLATIN POLYCHEMOTHERAPY, THERAPY START DATE 2018
     Route: 065
     Dates: end: 201811
  8. CARBOPLATIN [Suspect]
     Active Substance: CARBOPLATIN
     Dosage: CYCLIC (RECHALLENGE OF PLATINUM BASE CHEMOTHERAPY WAS PROPOSED WITH CARBOPLATIN-5FLUOROURACIL.
     Route: 065
  9. CARBOPLATIN [Suspect]
     Active Substance: CARBOPLATIN
     Dosage: CYCLIC (FIRST SEQUENCE OF POLY-CHEMOTHERAPY)
     Route: 065
  10. CARBOPLATIN [Suspect]
     Active Substance: CARBOPLATIN
     Dosage: CYCLIC (TWO CHEMOTHERAPY CYCLES) THERAPY START DATE:--2018
     Route: 065
     Dates: end: 201811
  11. DOCETAXEL [Suspect]
     Active Substance: DOCETAXEL
     Indication: Squamous cell carcinoma of head and neck
     Dosage: CYCLIC (FIRST SEQUENCE OF POLY-CHEMOTHERAPY)
     Route: 065
     Dates: start: 201606
  12. DOCETAXEL [Suspect]
     Active Substance: DOCETAXEL
     Dosage: CYCLIC (TWO CHEMOTHERAPY CYCLES)
     Route: 065
  13. FLUOROURACIL [Suspect]
     Active Substance: FLUOROURACIL
     Indication: Squamous cell carcinoma of head and neck
     Dosage: CYCLIC (RECHALLENGE OF PLATINUM BASE CHEMOTHERAPY WAS PROPOSED WITH CARBOPLATIN-5FLUOROURACIL.
     Route: 065
  14. FLUOROURACIL [Suspect]
     Active Substance: FLUOROURACIL
     Dosage: CYCLIC (SEQUENCE OF POLY-CHEMOTHERAPY-TPF)
     Route: 065
  15. FLUOROURACIL [Suspect]
     Active Substance: FLUOROURACIL
     Dosage: CYCLIC (6TH-8TH TPF CHEMOTHERAPY CYCLES)
     Route: 065
     Dates: start: 201711, end: 201802

REACTIONS (9)
  - Odynophagia [Unknown]
  - Malignant neoplasm progression [Unknown]
  - Squamous cell carcinoma of head and neck [Unknown]
  - Epistaxis [Unknown]
  - Leukopenia [Unknown]
  - Fatigue [Unknown]
  - Asthenia [Unknown]
  - Rash [Unknown]
  - Off label use [Unknown]

NARRATIVE: CASE EVENT DATE: 20171101
